FAERS Safety Report 14110545 (Version 2)
Quarter: 2018Q3

REPORT INFORMATION
  Report Type: Report from Study
  Country: US (occurrence: US)
  Receive Date: 20171020
  Receipt Date: 20180903
  Transmission Date: 20181010
  Serious: Yes (Other)
  Sender: FDA-Public Use
  Company Number: PHEH2017US033817

PATIENT
  Age: 50 Year
  Sex: Female
  Weight: 89.8 kg

DRUGS (1)
  1. GILENYA [Suspect]
     Active Substance: FINGOLIMOD HYDROCHLORIDE
     Indication: MULTIPLE SCLEROSIS
     Dosage: 0.5 MG, QD
     Route: 048
     Dates: start: 20170929

REACTIONS (11)
  - Pain [Unknown]
  - Head discomfort [Unknown]
  - Fatigue [Unknown]
  - Balance disorder [Unknown]
  - Mental impairment [Unknown]
  - Multiple sclerosis relapse [Unknown]
  - Memory impairment [Unknown]
  - Visual impairment [Unknown]
  - Cognitive disorder [Unknown]
  - Depression [Unknown]
  - Decreased interest [Unknown]

NARRATIVE: CASE EVENT DATE: 20171005
